FAERS Safety Report 7912998-5 (Version None)
Quarter: 2011Q4

REPORT INFORMATION
  Report Type: 
  Country: None (occurrence: None)
  Receive Date: 20111114
  Receipt Date: 20111104
  Transmission Date: 20120403
  Serious: Yes (Other)
  Sender: FDA-Public Use
  Company Number: JP-BRISTOL-MYERS SQUIBB COMPANY-16227290

PATIENT
  Age: 44 Year
  Sex: Female

DRUGS (3)
  1. METFORMIN HCL [Suspect]
     Indication: TYPE 2 DIABETES MELLITUS
     Dosage: 16750MG
     Route: 048
     Dates: start: 20111104, end: 20111104
  2. MIGLITOL [Suspect]
     Dosage: 50MG*50
     Route: 048
     Dates: start: 20111104, end: 20111104
  3. JANUVIA [Suspect]
     Dosage: 1DF: 9 TABS
     Route: 048
     Dates: start: 20111104, end: 20111104

REACTIONS (2)
  - SUICIDE ATTEMPT [None]
  - INTENTIONAL OVERDOSE [None]
